FAERS Safety Report 10983588 (Version 2)
Quarter: 2015Q2

REPORT INFORMATION
  Report Type: Spontaneous
  Country: US (occurrence: US)
  Receive Date: 20150403
  Receipt Date: 20150406
  Transmission Date: 20150821
  Serious: Yes (Hospitalization)
  Sender: FDA-Public Use
  Company Number: US-PERRIGO-15US003417

PATIENT
  Age: 69 Year
  Sex: Female
  Weight: 54.42 kg

DRUGS (13)
  1. NAPROXEN SODIUM 220 MG 368 [Suspect]
     Active Substance: NAPROXEN SODIUM
     Dosage: GREATER THAN 660 MG IN 24 HOURS
     Route: 048
     Dates: end: 2014
  2. ZESTRIL [Concomitant]
     Active Substance: LISINOPRIL
     Indication: HYPERTENSION
     Dosage: UNK, UNK
     Route: 065
  3. NAPROXEN SODIUM 220 MG 368 [Suspect]
     Active Substance: NAPROXEN SODIUM
     Dosage: 440 MG, PRN
     Route: 048
     Dates: end: 2014
  4. VITAMIN E                          /00110501/ [Concomitant]
     Indication: SUPPLEMENTATION THERAPY
     Dosage: UNK, UNK
     Route: 065
  5. BUMETANIDE. [Concomitant]
     Active Substance: BUMETANIDE
     Indication: OEDEMA
     Dosage: UNK, UNK
     Route: 048
  6. VITAMIN D                          /00107901/ [Concomitant]
     Active Substance: ERGOCALCIFEROL
     Indication: SUPPLEMENTATION THERAPY
     Dosage: UNK, UNK
     Route: 065
  7. VITAMIN C [Concomitant]
     Active Substance: ASCORBIC ACID
     Indication: SUPPLEMENTATION THERAPY
     Route: 065
  8. SYNTHROID [Concomitant]
     Active Substance: LEVOTHYROXINE SODIUM
     Indication: HYPOTHYROIDISM
     Dosage: UNK, UNK
     Route: 065
  9. NAPROXEN SODIUM 220 MG 368 [Suspect]
     Active Substance: NAPROXEN SODIUM
     Indication: TENSION HEADACHE
     Dosage: 440 MG, PRN
     Route: 048
     Dates: end: 2014
  10. NAPROXEN SODIUM 220 MG 368 [Suspect]
     Active Substance: NAPROXEN SODIUM
     Indication: HEADACHE
     Dosage: GREATER THAN 660 MG IN 24 HOURS
     Route: 048
     Dates: end: 2014
  11. FUROSEMIDE. [Concomitant]
     Active Substance: FUROSEMIDE
     Indication: OEDEMA
     Dosage: UNK, UNK
     Route: 065
  12. LOVASTATIN. [Concomitant]
     Active Substance: LOVASTATIN
     Indication: BLOOD CHOLESTEROL INCREASED
     Dosage: UNK, UNK
     Route: 065
  13. VITAMINS NOS [Concomitant]
     Active Substance: VITAMINS
     Indication: SUPPLEMENTATION THERAPY
     Dosage: UNK, UNK
     Route: 065

REACTIONS (2)
  - Gastrointestinal ulcer haemorrhage [Recovered/Resolved]
  - Incorrect dose administered [Recovered/Resolved]

NARRATIVE: CASE EVENT DATE: 201404
